FAERS Safety Report 14827247 (Version 1)
Quarter: 2018Q2

REPORT INFORMATION
  Report Type: Spontaneous
  Country: US (occurrence: US)
  Receive Date: 20180405
  Receipt Date: 20180405
  Transmission Date: 20180711
  Serious: Yes (Other)
  Sender: FDA-Public Use
  Company Number: None

PATIENT
  Age: 74 Year
  Sex: Female
  Weight: 64.35 kg

DRUGS (8)
  1. SPIRONOLACTONE. [Concomitant]
     Active Substance: SPIRONOLACTONE
  2. VITAMINS [Concomitant]
     Active Substance: VITAMINS
  3. TUMS [Concomitant]
     Active Substance: CALCIUM CARBONATE
  4. SIMVASTATIN. [Concomitant]
     Active Substance: SIMVASTATIN
  5. MIRTAZAPINE. [Concomitant]
     Active Substance: MIRTAZAPINE
  6. PROLIA [Suspect]
     Active Substance: DENOSUMAB
     Route: 058
  7. VITAMIN D [Concomitant]
     Active Substance: CHOLECALCIFEROL
  8. OMEGA 3 [Concomitant]
     Active Substance: OMEGA-3 FATTY ACIDS

REACTIONS (5)
  - Bone pain [None]
  - Pain in extremity [None]
  - Middle insomnia [None]
  - Arthralgia [None]
  - Bone density decreased [None]

NARRATIVE: CASE EVENT DATE: 20180320
